FAERS Safety Report 6807479-6 (Version None)
Quarter: 2010Q2

REPORT INFORMATION
  Report Type: 
  Country: None (occurrence: None)
  Receive Date: 20100625
  Receipt Date: 20100616
  Transmission Date: 20101027
  Serious: Yes (Death)
  Sender: FDA-Public Use
  Company Number: DSU-2010-02791

PATIENT
  Sex: Male

DRUGS (3)
  1. BENICAR HCT [Suspect]
     Indication: DRUG USE FOR UNKNOWN INDICATION
     Dosage: 40/12.5 MG PER ORAL
     Route: 048
  2. SIMVASTATIN [Concomitant]
  3. ASPIRIN [Concomitant]

REACTIONS (1)
  - ARRHYTHMIA [None]
